FAERS Safety Report 16460463 (Version 1)
Quarter: 2019Q2

REPORT INFORMATION
  Report Type: Spontaneous
  Country: AU (occurrence: AU)
  Receive Date: 20190620
  Receipt Date: 20190620
  Transmission Date: 20190711
  Serious: Yes (Hospitalization)
  Sender: FDA-Public Use
  Company Number: AU-MYLANLABS-2019M1057578

PATIENT
  Age: 50 Year
  Sex: Female

DRUGS (3)
  1. HYDROCORTISONE. [Suspect]
     Active Substance: HYDROCORTISONE
     Indication: ANGIOEDEMA
     Route: 042
  2. PEGFILGRASTIM [Suspect]
     Active Substance: PEGFILGRASTIM
     Indication: PROPHYLAXIS
     Dosage: THE WOMAN RECEIVED PEGFILGRASTIM AT THE END OF A 3-WEEK CHEMOTHERAPY CYCLE
     Route: 065
  3. PROMETHAZINE [Suspect]
     Active Substance: PROMETHAZINE\PROMETHAZINE HYDROCHLORIDE
     Indication: ANGIOEDEMA
     Route: 065

REACTIONS (4)
  - Angioedema [Recovered/Resolved]
  - Therapy non-responder [Unknown]
  - Urticaria [Recovered/Resolved]
  - Drug eruption [Recovered/Resolved]
